FAERS Safety Report 12419927 (Version 1)
Quarter: 2016Q2

REPORT INFORMATION
  Report Type: Spontaneous
  Country: FR (occurrence: FR)
  Receive Date: 20160531
  Receipt Date: 20160531
  Transmission Date: 20160815
  Serious: Yes (Hospitalization)
  Sender: FDA-Public Use
  Company Number: FR-SA-2016SA102813

PATIENT
  Age: 82 Year
  Sex: Male

DRUGS (10)
  1. RIFADINE [Suspect]
     Active Substance: RIFAMPIN
     Indication: POST PROCEDURAL INFECTION
     Route: 048
     Dates: start: 20160402, end: 20160424
  2. TARGOCID [Suspect]
     Active Substance: TEICOPLANIN
     Indication: POST PROCEDURAL INFECTION
     Dosage: ROUTE:PRT
     Dates: start: 20160402, end: 20160422
  3. CANDESARTAN [Concomitant]
     Active Substance: CANDESARTAN
  4. ZANIDIP [Concomitant]
     Active Substance: LERCANIDIPINE HYDROCHLORIDE
  5. NOVORAPID [Concomitant]
     Active Substance: INSULIN ASPART
  6. CORTANCYL [Concomitant]
     Active Substance: PREDNISONE
  7. CRESTOR [Concomitant]
     Active Substance: ROSUVASTATIN CALCIUM
  8. GLICLAZIDE [Concomitant]
     Active Substance: GLICLAZIDE
  9. STAGID [Concomitant]
     Active Substance: METFORMIN PAMOATE
  10. GLUCOR [Concomitant]
     Active Substance: ACARBOSE

REACTIONS (2)
  - Cardiac failure [Recovered/Resolved]
  - Renal failure [Recovering/Resolving]

NARRATIVE: CASE EVENT DATE: 20160419
